FAERS Safety Report 16204956 (Version 1)
Quarter: 2019Q2

REPORT INFORMATION
  Report Type: Spontaneous
  Country: AU (occurrence: AU)
  Receive Date: 20190416
  Receipt Date: 20190416
  Transmission Date: 20190711
  Serious: No
  Sender: FDA-Public Use
  Company Number: AU-MARKSANS PHARMA LIMITED-2065929

PATIENT
  Sex: Female

DRUGS (1)
  1. IBUPROFEN MOLECULE FROM AUS MARKET [Suspect]
     Active Substance: IBUPROFEN
     Route: 048

REACTIONS (2)
  - Diarrhoea [None]
  - Abdominal pain [None]
